FAERS Safety Report 25636882 (Version 1)
Quarter: 2025Q3

REPORT INFORMATION
  Report Type: Spontaneous
  Country: US (occurrence: US)
  Receive Date: 20250804
  Receipt Date: 20250804
  Transmission Date: 20251021
  Serious: No
  Sender: ALEXION PHARMACEUTICALS
  Company Number: US-AstraZeneca-CH-00919750AP

PATIENT
  Sex: Female

DRUGS (1)
  1. SYMBICORT [Suspect]
     Active Substance: BUDESONIDE\FORMOTEROL FUMARATE DIHYDRATE
     Dosage: 160 MICROGRAM, BID
     Route: 065

REACTIONS (9)
  - Product dose omission issue [Unknown]
  - Incorrect dose administered [Unknown]
  - Overdose [Unknown]
  - Product use issue [Unknown]
  - Device delivery system issue [Unknown]
  - Visual impairment [Unknown]
  - Asthma [Unknown]
  - Walking aid user [Unknown]
  - Wrong technique in device usage process [Unknown]
